FAERS Safety Report 4531208-2 (Version None)
Quarter: 2004Q4

REPORT INFORMATION
  Report Type: 
  Country: None (occurrence: None)
  Receive Date: 20041216
  Receipt Date: 20041028
  Transmission Date: 20050328
  Serious: Yes (Hospitalization)
  Sender: FDA-Public Use
  Company Number: 2002SE05879

PATIENT
  Age: 72 Year
  Sex: Female
  Weight: 95 kg

DRUGS (4)
  1. ROSUVASTATIN [Suspect]
     Indication: HYPERCHOLESTEROLAEMIA
     Dosage: 80 MG DAILY PO
     Route: 048
     Dates: start: 20000316, end: 20020411
  2. ROSUVASTATIN [Suspect]
     Indication: HYPERCHOLESTEROLAEMIA
     Dosage: 40 MG DAILY PO
     Route: 048
     Dates: start: 20020412
  3. METOPROLOL SUCCINATE [Concomitant]
  4. PLENDIL [Concomitant]

REACTIONS (1)
  - ERYSIPELAS [None]
